FAERS Safety Report 13587519 (Version 1)
Quarter: 2017Q2

REPORT INFORMATION
  Report Type: Spontaneous
  Country: US (occurrence: US)
  Receive Date: 20170526
  Receipt Date: 20170526
  Transmission Date: 20170830
  Serious: Yes (Life-Threatening)
  Sender: FDA-Public Use
  Company Number: None

PATIENT
  Age: 10 Year
  Sex: Male
  Weight: 29.3 kg

DRUGS (1)
  1. LAMICTAL [Suspect]
     Active Substance: LAMOTRIGINE
     Indication: AFFECTIVE DISORDER
     Dosage: ?          OTHER FREQUENCY:25 IN AM, 50 IN PM;?
     Route: 048

REACTIONS (1)
  - Stevens-Johnson syndrome [None]

NARRATIVE: CASE EVENT DATE: 20170407
